FAERS Safety Report 18371532 (Version 8)
Quarter: 2021Q3

REPORT INFORMATION
  Report Type: Spontaneous
  Country: US (occurrence: US)
  Receive Date: 20201012
  Receipt Date: 20210920
  Transmission Date: 20211014
  Serious: Yes (Other)
  Sender: FDA-Public Use
  Company Number: US-BAYER-2020-210116

PATIENT
  Age: 32 Year
  Sex: Female
  Weight: 70.75 kg

DRUGS (1)
  1. SKYLA [Suspect]
     Active Substance: LEVONORGESTREL
     Indication: CONTRACEPTION
     Dosage: 14?G PER DAY, CONTINUOUSLY
     Route: 015
     Dates: start: 20191217, end: 20200929

REACTIONS (6)
  - Abnormal uterine bleeding [Recovered/Resolved]
  - Acne [Recovered/Resolved]
  - Device breakage [Recovered/Resolved]
  - Complication of device removal [None]
  - Rash [Recovered/Resolved]
  - Embedded device [Recovered/Resolved]

NARRATIVE: CASE EVENT DATE: 202009
